FAERS Safety Report 9829906 (Version 1)
Quarter: 2014Q1

REPORT INFORMATION
  Report Type: Report from Study
  Country: CN (occurrence: CN)
  Receive Date: 20140120
  Receipt Date: 20140120
  Transmission Date: 20141002
  Serious: Yes (Death)
  Sender: FDA-Public Use
  Company Number: CN-ASTELLAS-2014JP000412

PATIENT
  Age: 69 Year
  Sex: Female
  Weight: 50 kg

DRUGS (3)
  1. MICAFUNGIN INJECTION [Suspect]
     Indication: SYSTEMIC CANDIDA
     Dosage: 50 MG, UID/QD
     Route: 042
     Dates: start: 20131217, end: 20140108
  2. LEVOFLOXACIN HYDROCHLORIDE [Concomitant]
     Indication: LUNG INFECTION
     Dosage: 500 MG, UID/QD
     Route: 048
  3. NITROGLYCERIN [Concomitant]
     Indication: CORONARY ARTERY DISEASE
     Dosage: UNK
     Route: 065

REACTIONS (1)
  - Death [Fatal]
